FAERS Safety Report 8081541-5 (Version None)
Quarter: 2012Q1

REPORT INFORMATION
  Report Type: 
  Country: None (occurrence: None)
  Receive Date: 20120130
  Receipt Date: 20120125
  Transmission Date: 20120608
  Serious: Yes (Death, Hospitalization)
  Sender: FDA-Public Use
  Company Number: IT-ROCHE-659577

PATIENT
  Sex: Female
  Weight: 74 kg

DRUGS (11)
  1. ONDANSETRON HCL [Concomitant]
  2. OLICLINOMEL [Concomitant]
  3. XELODA [Suspect]
     Indication: COLORECTAL CANCER
     Route: 065
  4. OXALIPLATIN [Suspect]
     Indication: COLORECTAL CANCER
     Dosage: AS PER PROTOCOL.
     Route: 065
  5. ASPIRIN [Concomitant]
     Route: 065
  6. ESCITALOPRAM [Concomitant]
  7. ANTACAL [Concomitant]
  8. LEVOPRAID [Concomitant]
  9. AVASTIN [Suspect]
     Indication: COLORECTAL CANCER
     Route: 042
     Dates: start: 20090303, end: 20090512
  10. TRAMADOL HCL [Concomitant]
  11. METOCLOPRAMIDE HYDROCHLORIDE [Concomitant]

REACTIONS (1)
  - FATIGUE [None]
